FAERS Safety Report 5090153-7 (Version None)
Quarter: 2006Q3

REPORT INFORMATION
  Report Type: 
  Country: None (occurrence: None)
  Receive Date: 20060828
  Receipt Date: 20050408
  Transmission Date: 20061208
  Serious: Yes (Hospitalization, Disabling)
  Sender: FDA-Public Use
  Company Number: US-MERCK-0512USA03243

PATIENT
  Age: 69 Year
  Sex: Male
  Weight: 85 kg

DRUGS (9)
  1. ZOCOR [Suspect]
     Route: 048
     Dates: start: 20000804, end: 20020101
  2. ZOCOR [Suspect]
     Route: 048
     Dates: start: 20020101, end: 20020301
  3. ZOCOR [Suspect]
     Route: 048
     Dates: start: 19990816, end: 20000801
  4. TOPROL-XL [Concomitant]
     Route: 048
  5. VITAMINS (UNSPECIFIED) [Concomitant]
     Route: 065
  6. ASPIRIN [Suspect]
     Route: 065
     Dates: end: 20030301
  7. ASPIRIN [Suspect]
     Route: 065
     Dates: start: 20030301
  8. LIPITOR [Suspect]
     Route: 065
     Dates: start: 20020301, end: 20030401
  9. LIPITOR [Suspect]
     Route: 065
     Dates: start: 20030101

REACTIONS (39)
  - ANTINUCLEAR ANTIBODY POSITIVE [None]
  - ARTERIOSCLEROSIS [None]
  - ARTHRITIS [None]
  - BLOOD CREATINE PHOSPHOKINASE INCREASED [None]
  - CONFUSIONAL STATE [None]
  - CONNECTIVE TISSUE DISORDER [None]
  - DEHYDRATION [None]
  - DEPRESSION [None]
  - DIARRHOEA [None]
  - DYSARTHRIA [None]
  - DYSLIPIDAEMIA [None]
  - DYSPHAGIA [None]
  - EXOSTOSIS [None]
  - FRACTURE [None]
  - GASTROINTESTINAL MOTILITY DISORDER [None]
  - GRANULOMA ANNULARE [None]
  - HYPERTENSION [None]
  - HYPONATRAEMIA [None]
  - INTERVERTEBRAL DISC DEGENERATION [None]
  - LIVER FUNCTION TEST ABNORMAL [None]
  - MALNUTRITION [None]
  - MYOPATHY TOXIC [None]
  - NOCTURIA [None]
  - OEDEMA PERIPHERAL [None]
  - ORAL CANDIDIASIS [None]
  - OSTEOARTHRITIS [None]
  - PERIPHERAL SENSORIMOTOR NEUROPATHY [None]
  - POLYMYOSITIS [None]
  - PROSTATIC DISORDER [None]
  - RENAL DISORDER [None]
  - RENAL FAILURE [None]
  - RESPIRATORY FAILURE [None]
  - RHABDOMYOLYSIS [None]
  - ROTATOR CUFF SYNDROME [None]
  - SEXUAL DYSFUNCTION [None]
  - SICCA SYNDROME [None]
  - SKIN DISORDER [None]
  - WEIGHT DECREASED [None]
  - WOUND [None]
